FAERS Safety Report 23127819 (Version 3)
Quarter: 2023Q4

REPORT INFORMATION
  Report Type: Spontaneous
  Country: JP (occurrence: JP)
  Receive Date: 20231031
  Receipt Date: 20231215
  Transmission Date: 20240109
  Serious: Yes (Death)
  Sender: FDA-Public Use
  Company Number: JP-BEH-2023164757

PATIENT
  Age: 5 Month
  Sex: Male

DRUGS (1)
  1. HUMAN IMMUNOGLOBULIN G [Suspect]
     Active Substance: HUMAN IMMUNOGLOBULIN G
     Indication: Blood immunoglobulin G decreased
     Route: 065

REACTIONS (4)
  - Infection [Unknown]
  - Pneumonia [Fatal]
  - Respiratory failure [Fatal]
  - Blood stem cell transplant failure [Fatal]
